FAERS Safety Report 7706158-0 (Version None)
Quarter: 2011Q3

REPORT INFORMATION
  Report Type: 
  Country: None (occurrence: None)
  Receive Date: 20110824
  Receipt Date: 20110811
  Transmission Date: 20111222
  Serious: Yes (Other)
  Sender: FDA-Public Use
  Company Number: JP-NOVOPROD-333642

PATIENT

DRUGS (3)
  1. NOVORAPID CHU FLEXPEN [Suspect]
     Indication: TYPE 2 DIABETES MELLITUS
     Dosage: (2-2-2-0)
     Route: 065
     Dates: start: 20110722
  2. NOVORAPID CHU FLEXPEN [Suspect]
     Dosage: 6-2-5-0
     Route: 065
     Dates: start: 20110726, end: 20110726
  3. LANTUS [Concomitant]
     Indication: TYPE 2 DIABETES MELLITUS
     Dosage: 3 U, QD, (0-0-0-3)
     Route: 058
     Dates: start: 20110722, end: 20110726

REACTIONS (1)
  - LIVER DISORDER [None]
